FAERS Safety Report 6462199-5 (Version None)
Quarter: 2009Q4

REPORT INFORMATION
  Report Type: 
  Country: None (occurrence: None)
  Receive Date: 20091130
  Receipt Date: 20091118
  Transmission Date: 20100525
  Serious: Yes (Other)
  Sender: FDA-Public Use
  Company Number: JP-BAYER-200914001BYL

PATIENT
  Age: 79 Year
  Sex: Male
  Weight: 53 kg

DRUGS (8)
  1. NEXAVAR [Suspect]
     Indication: RENAL CELL CARCINOMA
     Dosage: UNIT DOSE: 200 MG
     Route: 048
     Dates: start: 20090817, end: 20090829
  2. ASVERIN [Concomitant]
     Route: 048
  3. MUCODYNE [Concomitant]
     Route: 048
  4. BUFFERIN [Concomitant]
     Dosage: UNIT DOSE: 81 MG
     Route: 048
  5. NU-LOTAN [Concomitant]
     Route: 048
  6. PANALDINE [Concomitant]
     Route: 048
  7. SUCRALFATE [Concomitant]
     Dosage: UNIT DOSE: 90 %
     Route: 048
  8. MAGNESIUM OXIDE [Concomitant]
     Route: 048

REACTIONS (3)
  - HYPERTENSION [None]
  - RASH [None]
  - RHABDOMYOLYSIS [None]
